FAERS Safety Report 7220493-4 (Version None)
Quarter: 2011Q1

REPORT INFORMATION
  Report Type: 
  Country: None (occurrence: None)
  Receive Date: 20110111
  Receipt Date: 20110104
  Transmission Date: 20110831
  Serious: Yes (Hospitalization)
  Sender: FDA-Public Use
  Company Number: US-US-EMD SERONO, INC.-235458J09USA

PATIENT
  Sex: Male
  Weight: 84 kg

DRUGS (17)
  1. REBIF [Suspect]
     Indication: MULTIPLE SCLEROSIS
     Route: 058
     Dates: start: 20060517, end: 20091001
  2. FISH OIL [Concomitant]
     Route: 048
  3. TAMSULOSIN [Concomitant]
     Route: 048
  4. TRAZODONE [Concomitant]
     Route: 048
  5. BACLOFEN [Concomitant]
     Route: 048
  6. MULTI-VITAMIN [Concomitant]
     Route: 048
  7. NORCO [Concomitant]
     Route: 048
  8. VENLAFAXINE [Concomitant]
     Route: 048
  9. INTERFERON BETA-1A [Concomitant]
     Route: 030
  10. DOCUSATE SODIUM [Concomitant]
     Route: 048
  11. PANTOPRAZOLE [Concomitant]
     Route: 048
  12. WARFARIN [Concomitant]
     Route: 048
  13. BISACODYL [Concomitant]
     Route: 048
  14. HYDROCODONE BITARTRATE AND ACETAMINOPHEN [Concomitant]
     Indication: PAIN
     Route: 048
  15. METOPROLOL TARTRATE [Concomitant]
     Route: 048
  16. SILDENAFIL [Concomitant]
     Route: 048
  17. REBIF [Suspect]
     Route: 058
     Dates: start: 20090101

REACTIONS (2)
  - MULTIPLE SCLEROSIS RELAPSE [None]
  - CELLULITIS [None]
